FAERS Safety Report 16256215 (Version 4)
Quarter: 2019Q3

REPORT INFORMATION
  Report Type: Spontaneous
  Country: US (occurrence: US)
  Receive Date: 20190430
  Receipt Date: 20190814
  Transmission Date: 20191004
  Serious: Yes (Other)
  Sender: FDA-Public Use
  Company Number: US-STRONGBRIDGE BIOPHARMA-2019-STR-000098

PATIENT

DRUGS (2)
  1. KEVEYIS [Suspect]
     Active Substance: DICHLORPHENAMIDE
     Dosage: 50 MG, QD
     Route: 048
     Dates: start: 20190701, end: 20190712
  2. KEVEYIS [Suspect]
     Active Substance: DICHLORPHENAMIDE
     Indication: FAMILIAL PERIODIC PARALYSIS
     Dosage: 100 MG, BID
     Route: 048
     Dates: start: 20180112, end: 20190413

REACTIONS (8)
  - Nephrolithiasis [Recovered/Resolved]
  - Chromaturia [Not Recovered/Not Resolved]
  - Nausea [Recovering/Resolving]
  - Constipation [Recovering/Resolving]
  - Drug intolerance [Recovering/Resolving]
  - Dehydration [Recovered/Resolved]
  - Diarrhoea [Recovering/Resolving]
  - Dehydration [Recovering/Resolving]

NARRATIVE: CASE EVENT DATE: 20190420
